FAERS Safety Report 8091217-6 (Version None)
Quarter: 2012Q1

REPORT INFORMATION
  Report Type: 
  Country: None (occurrence: None)
  Receive Date: 20120129
  Receipt Date: 20110928
  Transmission Date: 20120608
  Serious: No
  Sender: FDA-Public Use
  Company Number: US-ABBOTT-11P-163-0859701-00

PATIENT
  Sex: Female
  Weight: 108.96 kg

DRUGS (9)
  1. METFORMIN HCL [Concomitant]
     Indication: DIABETES MELLITUS
  2. ASPIRIN [Concomitant]
     Indication: PROPHYLAXIS
  3. LISINOPRIL [Concomitant]
     Indication: HYPERTENSION
  4. SIMVASTATIN [Concomitant]
     Indication: BLOOD CHOLESTEROL INCREASED
  5. POTASSIUM [Concomitant]
     Indication: BLOOD POTASSIUM DECREASED
  6. HUMIRA [Suspect]
     Indication: PSORIASIS
     Dates: start: 20060101, end: 20110301
  7. UNNAMED PILL [Concomitant]
     Indication: PSORIASIS
     Dates: start: 20110301, end: 20110401
  8. METOLAZONE [Concomitant]
     Indication: HYPERTENSION
  9. UNNAMED MEDICATION [Concomitant]
     Indication: NEUROPATHY PERIPHERAL

REACTIONS (2)
  - PSORIASIS [None]
  - PRURITUS [None]
